FAERS Safety Report 9445564 (Version 4)
Quarter: 2015Q1

REPORT INFORMATION
  Report Type: Spontaneous
  Country: IT (occurrence: IT)
  Receive Date: 20130807
  Receipt Date: 20140415
  Transmission Date: 20150721
  Serious: Yes (Death)
  Sender: FDA-Public Use
  Company Number: IT-WATSON-2013-13999

PATIENT
  Age: 65 Year
  Sex: Female
  Weight: 80 kg

DRUGS (4)
  1. CARBOLITHIUM [Suspect]
     Active Substance: LITHIUM CARBONATE
     Indication: PRODUCT USED FOR UNKNOWN INDICATION
     Dosage: 500 MG CAPSULE
     Route: 048
     Dates: start: 20090101
  2. QUETIAPINE FUMARATE (UNKNOWN) [Suspect]
     Active Substance: QUETIAPINE FUMARATE
     Indication: PRODUCT USED FOR UNKNOWN INDICATION
     Dosage: 50 MG, DAILY
     Route: 048
     Dates: start: 20120906, end: 20130201
  3. CIPROFLOXACINA /00697201/ [Suspect]
     Active Substance: CIPROFLOXACIN
     Indication: PRODUCT USED FOR UNKNOWN INDICATION
     Dosage: UNK, UNKNOWN
     Route: 048
     Dates: start: 20130131, end: 20130201
  4. SYCREST [Suspect]
     Active Substance: ASENAPINE MALEATE
     Indication: PRODUCT USED FOR UNKNOWN INDICATION
     Dosage: 10 MG, DAILY
     Route: 060
     Dates: start: 20120906, end: 20130201

REACTIONS (2)
  - Lower respiratory tract infection bacterial [Fatal]
  - Drug interaction [Fatal]

NARRATIVE: CASE EVENT DATE: 20130201
